FAERS Safety Report 5683383-4 (Version None)
Quarter: 2008Q1

REPORT INFORMATION
  Report Type: 
  Country: None (occurrence: None)
  Receive Date: 20080327
  Receipt Date: 20080320
  Transmission Date: 20080703
  Serious: No
  Sender: FDA-Public Use
  Company Number: US-BAXTER-2008BH002659

PATIENT

DRUGS (2)
  1. HEPARIN SODIUM [Suspect]
     Indication: THROMBOSIS PROPHYLAXIS
     Route: 042
     Dates: start: 20080108
  2. HEPARIN SODIUM [Suspect]
     Route: 042
     Dates: start: 20080108

REACTIONS (4)
  - FLUSHING [None]
  - HEART RATE INCREASED [None]
  - HYPOAESTHESIA ORAL [None]
  - NAUSEA [None]
